FAERS Safety Report 11087058 (Version 1)
Quarter: 2015Q2

REPORT INFORMATION
  Report Type: Spontaneous
  Country: US (occurrence: None)
  Receive Date: 20150501
  Receipt Date: 20150501
  Transmission Date: 20150821
  Serious: Yes (Disabling, Other)
  Sender: FDA-Public Use
  Company Number: None

PATIENT
  Age: 27 Year
  Sex: Female
  Weight: 60.78 kg

DRUGS (11)
  1. RISPERDAL [Suspect]
     Active Substance: RISPERIDONE
     Indication: POST-TRAUMATIC STRESS DISORDER
     Dosage: RISPERIDONE, TWICE DAILY, TAKEN BY MOUTH
     Route: 048
     Dates: start: 20150414, end: 20150430
  2. RISPERDAL [Suspect]
     Active Substance: RISPERIDONE
     Indication: ANXIETY
     Dosage: RISPERIDONE, TWICE DAILY, TAKEN BY MOUTH
     Route: 048
     Dates: start: 20150414, end: 20150430
  3. MULTIVITAMINS [Concomitant]
     Active Substance: VITAMINS
  4. RISPERIDONE. [Concomitant]
     Active Substance: RISPERIDONE
  5. OMEGAS 3-6-9 [Concomitant]
  6. LORAZEPAM. [Concomitant]
     Active Substance: LORAZEPAM
  7. TYLENOL [Concomitant]
     Active Substance: ACETAMINOPHEN
  8. COGENTIN [Concomitant]
     Active Substance: BENZTROPINE MESYLATE
  9. CLARITIN [Concomitant]
     Active Substance: LORATADINE
  10. MELATONIN [Concomitant]
     Active Substance: MELATONIN
  11. BIO-FLEX [Concomitant]

REACTIONS (5)
  - Memory impairment [None]
  - Nausea [None]
  - Disturbance in attention [None]
  - Thought blocking [None]
  - Somnolence [None]

NARRATIVE: CASE EVENT DATE: 20150414
